FAERS Safety Report 6757682-9 (Version None)
Quarter: 2010Q2

REPORT INFORMATION
  Report Type: 
  Country: None (occurrence: None)
  Receive Date: 20100524
  Receipt Date: 20100201
  Transmission Date: 20101027
  Serious: No
  Sender: FDA-Public Use
  Company Number: 006019

PATIENT
  Sex: Female
  Weight: 62.1 kg

DRUGS (5)
  1. CIMZIA [Suspect]
     Indication: CROHN'S DISEASE
     Dosage: (SUBCUTANEOUS)
     Route: 058
     Dates: start: 20090106
  2. PREDNISONE [Concomitant]
  3. FOLIC ACID [Concomitant]
  4. INEXIUM /01479302/ [Concomitant]
  5. HYDROMORPHONE [Concomitant]

REACTIONS (7)
  - BRADYPHRENIA [None]
  - CHILLS [None]
  - FOOD CRAVING [None]
  - HYPERHIDROSIS [None]
  - RHINORRHOEA [None]
  - SENSORY LOSS [None]
  - SOMNOLENCE [None]
